FAERS Safety Report 9312791 (Version 2)
Quarter: 2013Q2

REPORT INFORMATION
  Report Type: Spontaneous
  Country: US (occurrence: US)
  Receive Date: 20130528
  Receipt Date: 20130620
  Transmission Date: 20140414
  Serious: No
  Sender: FDA-Public Use
  Company Number: US-009507513-1305USA015854

PATIENT
  Age: 53 Year
  Sex: Female
  Weight: 77.98 kg

DRUGS (4)
  1. CLARITIN REDITABS [Suspect]
     Indication: SINUS DISORDER
     Dosage: 10 MG, QD
     Route: 048
     Dates: start: 20130401, end: 20130510
  2. CLARITIN REDITABS [Suspect]
     Indication: MEDICAL OBSERVATION
  3. OMEPRAZOLE [Concomitant]
     Indication: DYSPEPSIA
  4. ATENOLOL [Concomitant]
     Indication: BLOOD PRESSURE

REACTIONS (4)
  - Feeling abnormal [Recovered/Resolved]
  - Decreased appetite [Recovered/Resolved]
  - Off label use [Unknown]
  - Drug ineffective [Unknown]
